FAERS Safety Report 8096580-8 (Version None)
Quarter: 2012Q1

REPORT INFORMATION
  Report Type: 
  Country: None (occurrence: None)
  Receive Date: 20120129
  Receipt Date: 20111108
  Transmission Date: 20120608
  Serious: No
  Sender: FDA-Public Use
  Company Number: US-ABBOTT-11P-163-0872562-00

PATIENT
  Age: 47 Year
  Sex: Female

DRUGS (3)
  1. XYZAL [Concomitant]
     Indication: HYPERSENSITIVITY
  2. PRISTIQ [Concomitant]
     Indication: MENOPAUSE
  3. HUMIRA [Suspect]
     Indication: PSORIASIS
     Dates: start: 20110826

REACTIONS (4)
  - PRURITUS [None]
  - SKIN EXFOLIATION [None]
  - DRUG INEFFECTIVE [None]
  - PSORIASIS [None]
